FAERS Safety Report 9788786 (Version 1)
Quarter: 2013Q4

REPORT INFORMATION
  Report Type: Spontaneous
  Country: US (occurrence: US)
  Receive Date: 20131230
  Receipt Date: 20131230
  Transmission Date: 20140711
  Serious: Yes (Other)
  Sender: FDA-Public Use
  Company Number: US-BAYER-2013-157176

PATIENT
  Sex: Male

DRUGS (1)
  1. ALEVE CAPLET [Suspect]
     Indication: BACK PAIN
     Dosage: 1 DF, QD
     Route: 048
     Dates: end: 20131219

REACTIONS (2)
  - Haematuria [None]
  - Incorrect drug administration duration [None]
